FAERS Safety Report 20917184 (Version 1)
Quarter: 2022Q2

REPORT INFORMATION
  Report Type: Spontaneous
  Country: US (occurrence: US)
  Receive Date: 20220606
  Receipt Date: 20220606
  Transmission Date: 20220721
  Serious: Yes (Other)
  Sender: FDA-Public Use
  Company Number: US-SA-SAC20220601000755

PATIENT
  Age: 42 Year
  Sex: Female

DRUGS (1)
  1. ZANTAC [Suspect]
     Active Substance: RANITIDINE HYDROCHLORIDE
     Indication: Dyspepsia
     Dosage: UNK, QW
     Route: 065
     Dates: start: 201301, end: 201601

REACTIONS (5)
  - Breast cancer stage I [Unknown]
  - Thyroid cancer [Unknown]
  - BRAF gene mutation [Unknown]
  - Lymphoedema [Unknown]
  - Breast reconstruction [Unknown]

NARRATIVE: CASE EVENT DATE: 20181201
